FAERS Safety Report 12957374 (Version 2)
Quarter: 2016Q4

REPORT INFORMATION
  Report Type: Spontaneous
  Country: BR (occurrence: BR)
  Receive Date: 20161118
  Receipt Date: 20161214
  Transmission Date: 20170207
  Serious: Yes (Disabling, Other)
  Sender: FDA-Public Use
  Company Number: BR-AMGEN-BRASP2016161166

PATIENT
  Age: 58 Year
  Sex: Male

DRUGS (3)
  1. INSULIN REGULAR [Concomitant]
     Active Substance: INSULIN NOS
     Indication: DIABETES MELLITUS
     Dosage: MAXIMUM DOSE AROUND 50
  2. NPH INSULIN [Concomitant]
     Active Substance: INSULIN BEEF
     Indication: DIABETES MELLITUS
     Dosage: MAXIMUM DOSE AROUND 50
  3. ENBREL [Suspect]
     Active Substance: ETANERCEPT
     Indication: SPONDYLITIS
     Dosage: 50 MG, EVERY 14 DAYS
     Route: 065
     Dates: start: 201510, end: 201601

REACTIONS (7)
  - Joint swelling [Recovered/Resolved]
  - Erythema [Unknown]
  - Mass [Unknown]
  - Joint abscess [Recovered/Resolved]
  - Drug ineffective [Not Recovered/Not Resolved]
  - Diabetes mellitus inadequate control [Not Recovered/Not Resolved]
  - Abasia [Not Recovered/Not Resolved]
